FAERS Safety Report 5443570-7 (Version None)
Quarter: 2007Q3

REPORT INFORMATION
  Report Type: 
  Country: None (occurrence: None)
  Receive Date: 20070905
  Receipt Date: 20070904
  Transmission Date: 20080115
  Serious: Yes (Other)
  Sender: FDA-Public Use
  Company Number: A0677952A

PATIENT
  Age: 40 Year
  Sex: Female

DRUGS (1)
  1. TUMS E-X TABLETS [Suspect]
     Indication: THYROID DISORDER

REACTIONS (1)
  - NEPHROLITHIASIS [None]
